FAERS Safety Report 9790590 (Version 1)
Quarter: 2013Q4

REPORT INFORMATION
  Report Type: Spontaneous
  Country: GB (occurrence: GB)
  Receive Date: 20131231
  Receipt Date: 20131231
  Transmission Date: 20140711
  Serious: Yes (Other)
  Sender: FDA-Public Use
  Company Number: PHFR2013GB007276

PATIENT
  Age: 38 Year
  Sex: Female

DRUGS (1)
  1. PILOCARPINE [Suspect]
     Indication: SIALOADENITIS
     Dosage: 5 MG
     Route: 048
     Dates: start: 201305, end: 201309

REACTIONS (2)
  - Autoimmune hepatitis [Not Recovered/Not Resolved]
  - Chronic hepatitis [Not Recovered/Not Resolved]
